FAERS Safety Report 13648300 (Version 1)
Quarter: 2017Q2

REPORT INFORMATION
  Report Type: Spontaneous
  Country: US (occurrence: US)
  Receive Date: 20170613
  Receipt Date: 20170613
  Transmission Date: 20170830
  Serious: Yes (Hospitalization, Other)
  Sender: FDA-Public Use
  Company Number: US-ELI_LILLY_AND_COMPANY-US201705012795

PATIENT
  Age: 53 Year
  Sex: Female

DRUGS (15)
  1. LARTRUVO [Suspect]
     Active Substance: OLARATUMAB
     Dosage: 880 MG, UNKNOWN
     Route: 042
     Dates: start: 20170511
  2. AOV VITAMIN D3 [Concomitant]
  3. COLACE [Concomitant]
     Active Substance: DOCUSATE SODIUM
  4. SENOKOT [Concomitant]
     Active Substance: SENNOSIDES
  5. TURMERIC                           /01079602/ [Concomitant]
     Active Substance: HERBALS\TURMERIC
  6. GABAPENTIN. [Concomitant]
     Active Substance: GABAPENTIN
  7. COMPAZINE                          /00013302/ [Concomitant]
     Active Substance: PROCHLORPERAZINE EDISYLATE
     Dosage: 1 DF, PRN
  8. LARTRUVO [Suspect]
     Active Substance: OLARATUMAB
     Dosage: 980 MG, UNKNOWN
     Route: 042
     Dates: start: 20170518
  9. DOXORUBICIN [Suspect]
     Active Substance: DOXORUBICIN
     Indication: LEIOMYOSARCOMA
     Dosage: 1 DF, UNKNOWN
     Route: 065
     Dates: start: 20170511
  10. VITAMIN B12 [Concomitant]
     Active Substance: CYANOCOBALAMIN
  11. MS CONTIN [Concomitant]
     Active Substance: MORPHINE SULFATE
  12. MSIR [Concomitant]
     Active Substance: MORPHINE SULFATE
  13. LARTRUVO [Suspect]
     Active Substance: OLARATUMAB
     Indication: LEIOMYOSARCOMA
     Dosage: 880 MG, UNKNOWN
     Route: 042
     Dates: start: 20170511
  14. ZOFRAN [Concomitant]
     Active Substance: ONDANSETRON HYDROCHLORIDE
  15. TEGRETOL [Concomitant]
     Active Substance: CARBAMAZEPINE
     Indication: EPILEPSY

REACTIONS (4)
  - Embolic stroke [Unknown]
  - Malaise [Unknown]
  - Hepatic haemorrhage [Unknown]
  - Weight increased [Unknown]

NARRATIVE: CASE EVENT DATE: 20170524
